FAERS Safety Report 5630365-4 (Version None)
Quarter: 2008Q1

REPORT INFORMATION
  Report Type: 
  Country: None (occurrence: None)
  Receive Date: 20080213
  Receipt Date: 20080128
  Transmission Date: 20080703
  Serious: Yes (Hospitalization)
  Sender: FDA-Public Use
  Company Number: 2006S1000228

PATIENT
  Age: 70 Year
  Sex: Female
  Weight: 63.6 kg

DRUGS (9)
  1. INOMAX [Suspect]
     Indication: MYOCARDIAL INFARCTION
     Dosage: 80 PPM;CONT;INH
     Route: 055
     Dates: start: 20061114, end: 20061114
  2. CLOPIDOGREL [Concomitant]
  3. ASPIRIN [Concomitant]
  4. ONDANSETRON [Concomitant]
  5. REOPRO [Concomitant]
  6. DOPAMINE HCL [Concomitant]
  7. PROPOFOL [Concomitant]
  8. PIPERACILLIN [Concomitant]
  9. AZITHROMYCIN [Concomitant]

REACTIONS (3)
  - HYPOTENSION [None]
  - PULMONARY OEDEMA [None]
  - VOMITING [None]
